FAERS Safety Report 15674315 (Version 4)
Quarter: 2019Q3

REPORT INFORMATION
  Report Type: Spontaneous
  Country: US (occurrence: US)
  Receive Date: 20181130
  Receipt Date: 20190708
  Transmission Date: 20191004
  Serious: No
  Sender: FDA-Public Use
  Company Number: US-009507513-1811USA008848

PATIENT
  Age: 85 Year
  Sex: Female

DRUGS (4)
  1. PROVENTIL [Suspect]
     Active Substance: ALBUTEROL
     Dosage: 2 PUFFS EVERY 4 TO 6 HOURS AS NEEDED
     Route: 055
     Dates: start: 1989
  2. PROVENTIL [Suspect]
     Active Substance: ALBUTEROL
     Indication: UPPER-AIRWAY COUGH SYNDROME
     Dosage: 2 PUFFS ORALLY DAILY
     Route: 055
  3. PROVENTIL [Suspect]
     Active Substance: ALBUTEROL
     Dosage: UNK
  4. NASOCORT [Concomitant]
     Active Substance: BUDESONIDE

REACTIONS (5)
  - Dyspnoea [Not Recovered/Not Resolved]
  - Device occlusion [Unknown]
  - Incorrect dose administered [Unknown]
  - Poor quality device used [Unknown]
  - Product quality issue [Not Recovered/Not Resolved]

NARRATIVE: CASE EVENT DATE: 20181119
